FAERS Safety Report 7825940-2 (Version None)
Quarter: 2011Q4

REPORT INFORMATION
  Report Type: 
  Country: None (occurrence: None)
  Receive Date: 20111019
  Receipt Date: 20111010
  Transmission Date: 20120403
  Serious: Yes (Disabling)
  Sender: FDA-Public Use
  Company Number: BR-ASTRAZENECA-2011SE61595

PATIENT
  Age: 70 Year
  Sex: Female
  Weight: 95 kg

DRUGS (3)
  1. MANIVASC [Suspect]
     Route: 048
     Dates: start: 20080101, end: 20110101
  2. ATACAND [Suspect]
     Indication: HYPERTENSION
     Dosage: 16 MG
     Route: 048
     Dates: start: 20080101, end: 20110101
  3. METOPROLOL SUCCINATE [Suspect]
     Route: 048
     Dates: start: 20080101, end: 20110101

REACTIONS (4)
  - FALL [None]
  - DRUG INEFFECTIVE [None]
  - TENDON DISORDER [None]
  - HYPERTENSION [None]
